FAERS Safety Report 5709946-5 (Version None)
Quarter: 2008Q2

REPORT INFORMATION
  Report Type: 
  Country: None (occurrence: None)
  Receive Date: 20080418
  Receipt Date: 20080409
  Transmission Date: 20081010
  Serious: Yes (Hospitalization, Other)
  Sender: FDA-Public Use
  Company Number: CH-ABBOTT-08P-151-0446482-00

PATIENT
  Age: 66 Year
  Sex: Female

DRUGS (7)
  1. HYDROCHLOROTHIAZIDE [Suspect]
     Indication: HYPERTENSION
     Dosage: NOT REPORTED
  2. HYDROCHLOROTHIAZIDE [Suspect]
     Dosage: NOT REPORTED
  3. MIRTAZAPINE [Suspect]
     Indication: DEPRESSION
  4. IRBESARTAN [Concomitant]
     Indication: HYPERTENSION
     Dosage: NOT REPORTED
  5. IRBESARTAN [Concomitant]
     Dosage: NOT REPORTED
  6. LEVOTHYROXINE SODIUM [Concomitant]
     Indication: HYPOTHYROIDISM
     Dosage: NOT REPORTED
  7. ZOLPIDEM [Concomitant]
     Indication: SLEEP DISORDER
     Dosage: NOT REPORTED

REACTIONS (1)
  - INAPPROPRIATE ANTIDIURETIC HORMONE SECRETION [None]
